FAERS Safety Report 6103174-X (Version None)
Quarter: 2009Q1

REPORT INFORMATION
  Report Type: 
  Country: None (occurrence: None)
  Receive Date: 20090305
  Receipt Date: 20090224
  Transmission Date: 20090719
  Serious: Yes (Other)
  Sender: FDA-Public Use
  Company Number: US-BAYER-200914186NA

PATIENT
  Age: 45 Year
  Sex: Female

DRUGS (2)
  1. BETASERON [Suspect]
     Indication: RELAPSING-REMITTING MULTIPLE SCLEROSIS
     Dosage: TOTAL DAILY DOSE: 8 MIU
     Route: 058
     Dates: start: 20081029
  2. BETASERON [Suspect]
     Route: 058
     Dates: start: 19970717, end: 20021007

REACTIONS (4)
  - FATIGUE [None]
  - FEELING HOT [None]
  - LOSS OF CONSCIOUSNESS [None]
  - SOMNOLENCE [None]
